FAERS Safety Report 9405163 (Version 1)
Quarter: 2013Q3

REPORT INFORMATION
  Report Type: Spontaneous
  Country: DE (occurrence: DE)
  Receive Date: 20130717
  Receipt Date: 20130717
  Transmission Date: 20140515
  Serious: Yes (Other)
  Sender: FDA-Public Use
  Company Number: DE-UCBSA-091641

PATIENT
  Age: 24 Month
  Sex: Male

DRUGS (2)
  1. KEPPRA [Suspect]
     Indication: CONVULSION
  2. OXCARBAZEPINE [Suspect]
     Indication: CONVULSION

REACTIONS (2)
  - Synovial cyst [Unknown]
  - Drug ineffective [Unknown]
